FAERS Safety Report 14452184 (Version 3)
Quarter: 2018Q1

REPORT INFORMATION
  Report Type: Spontaneous
  Country: JP (occurrence: JP)
  Receive Date: 20180129
  Receipt Date: 20180309
  Transmission Date: 20180509
  Serious: Yes (Death)
  Sender: FDA-Public Use
  Company Number: JP-ROCHE-2063437

PATIENT
  Age: 87 Year
  Sex: Female
  Weight: 46 kg

DRUGS (4)
  1. ALFACALCIDOL [Concomitant]
     Active Substance: ALFACALCIDOL
     Route: 048
     Dates: start: 20160318
  2. NEUROTROPIN (JAPAN) [Concomitant]
     Route: 048
     Dates: start: 20160304
  3. BONVIVA [Suspect]
     Active Substance: IBANDRONATE SODIUM
     Indication: OSTEOPOROSIS POSTMENOPAUSAL
     Dosage: DOSAGE IS UNCERTAIN.
     Route: 042
     Dates: start: 20160318
  4. MOHRUS TAPE L [Concomitant]
     Active Substance: KETOPROFEN
     Dosage: UNCERTAIN DOSAGE (BOTH KNEES AND WAIST)
     Route: 061
     Dates: start: 20160627

REACTIONS (1)
  - Colon cancer recurrent [Fatal]

NARRATIVE: CASE EVENT DATE: 20161114
